FAERS Safety Report 13148152 (Version 1)
Quarter: 2017Q1

REPORT INFORMATION
  Report Type: Spontaneous
  Country: US (occurrence: US)
  Receive Date: 20170125
  Receipt Date: 20170125
  Transmission Date: 20170428
  Serious: No
  Sender: FDA-Public Use
  Company Number: US-MYLANLABS-2016M1021133

PATIENT
  Sex: Male

DRUGS (5)
  1. SUBUTEX [Concomitant]
     Active Substance: BUPRENORPHINE HYDROCHLORIDE
     Dosage: UNK
  2. KETAMINE HYDROCHLORIDE INJECTION USP [Suspect]
     Active Substance: KETAMINE HYDROCHLORIDE
     Indication: PAIN
     Dosage: 3-4 ML, ONCE DAILY PRN
     Route: 048
     Dates: start: 201604
  3. CYMBALTA [Concomitant]
     Active Substance: DULOXETINE HYDROCHLORIDE
     Dosage: UNK
  4. LYRICA [Concomitant]
     Active Substance: PREGABALIN
     Dosage: UNK
  5. KETAMINE HYDROCHLORIDE INJECTION USP [Suspect]
     Active Substance: KETAMINE HYDROCHLORIDE
     Indication: OFF LABEL USE

REACTIONS (3)
  - Drug effect delayed [Not Recovered/Not Resolved]
  - Dizziness [Recovered/Resolved]
  - Incorrect route of drug administration [Not Recovered/Not Resolved]

NARRATIVE: CASE EVENT DATE: 201604
